FAERS Safety Report 11896374 (Version 1)
Quarter: 2016Q1

REPORT INFORMATION
  Report Type: Spontaneous
  Country: US (occurrence: US)
  Receive Date: 20160107
  Receipt Date: 20160107
  Transmission Date: 20160526
  Serious: No
  Sender: FDA-Public Use
  Company Number: US-DRREDDYS-USA/USA/15/0053136

PATIENT
  Age: 68 Year
  Sex: Male
  Weight: 68 kg

DRUGS (4)
  1. HABITROL [Suspect]
     Active Substance: NICOTINE
     Route: 062
  2. VESICARE [Concomitant]
     Active Substance: SOLIFENACIN SUCCINATE
     Indication: PRODUCT USED FOR UNKNOWN INDICATION
     Route: 065
  3. LISINOPRIL. [Concomitant]
     Active Substance: LISINOPRIL
     Indication: PRODUCT USED FOR UNKNOWN INDICATION
     Route: 065
  4. HABITROL [Suspect]
     Active Substance: NICOTINE
     Indication: SMOKING CESSATION THERAPY
     Route: 062

REACTIONS (4)
  - Pruritus generalised [Unknown]
  - Drug hypersensitivity [Unknown]
  - Pharyngeal oedema [Unknown]
  - Rash generalised [Recovering/Resolving]

NARRATIVE: CASE EVENT DATE: 20150927
